FAERS Safety Report 6519578-7 (Version None)
Quarter: 2009Q4

REPORT INFORMATION
  Report Type: 
  Country: None (occurrence: None)
  Receive Date: 20091228
  Receipt Date: 20091222
  Transmission Date: 20100525
  Serious: Yes (Death)
  Sender: FDA-Public Use
  Company Number: JP-JNJFOC-20091206783

PATIENT
  Age: 65 Year
  Sex: Male

DRUGS (13)
  1. RISPERDAL CONSTA [Suspect]
     Indication: DRUG USE FOR UNKNOWN INDICATION
     Route: 030
  2. RISPERIDONE [Suspect]
     Indication: DRUG USE FOR UNKNOWN INDICATION
     Route: 048
  3. ALOSENN [Concomitant]
     Route: 048
  4. NIFEDIPINE [Concomitant]
     Route: 048
  5. LIMAS [Concomitant]
     Route: 048
  6. VEGETAMIN-A [Concomitant]
     Route: 048
  7. VEGETAMIN-B [Concomitant]
     Route: 048
  8. SILECE [Concomitant]
     Route: 048
  9. HALCION [Concomitant]
     Route: 048
  10. LEVOTOMIN [Concomitant]
     Route: 048
  11. BARNETIL [Concomitant]
     Route: 048
  12. CERCINE [Concomitant]
     Route: 048
  13. HACHIMI-JIO-GAN [Concomitant]
     Route: 048

REACTIONS (1)
  - ARRHYTHMIA [None]
